FAERS Safety Report 21562078 (Version 1)
Quarter: 2022Q4

REPORT INFORMATION
  Report Type: Spontaneous
  Country: US (occurrence: None)
  Receive Date: 20221105
  Receipt Date: 20221105
  Transmission Date: 20230112
  Serious: Yes (Other)
  Sender: FDA-Public Use
  Company Number: None

PATIENT
  Age: 71 Year
  Sex: Female

DRUGS (1)
  1. OZEMPIC [Suspect]
     Active Substance: SEMAGLUTIDE
     Indication: Glucose tolerance impaired
     Dosage: OTHER QUANTITY : 1 1 MG;?OTHER FREQUENCY : ONCE A WEEK;?
     Route: 058

REACTIONS (2)
  - Alopecia [None]
  - Stress [None]

NARRATIVE: CASE EVENT DATE: 20220701
